FAERS Safety Report 13233590 (Version 1)
Quarter: 2017Q1

REPORT INFORMATION
  Report Type: Spontaneous
  Country: US (occurrence: US)
  Receive Date: 20170214
  Receipt Date: 20170214
  Transmission Date: 20170428
  Serious: No
  Sender: FDA-Public Use
  Company Number: None

PATIENT
  Age: 68 Year
  Sex: Female

DRUGS (2)
  1. HYDROMORPHONE [Suspect]
     Active Substance: HYDROMORPHONE
  2. FENTANYL. [Suspect]
     Active Substance: FENTANYL

REACTIONS (2)
  - Cholelithiasis [None]
  - Acute kidney injury [None]

NARRATIVE: CASE EVENT DATE: 20150807
